FAERS Safety Report 13015051 (Version 4)
Quarter: 2017Q2

REPORT INFORMATION
  Report Type: Report from Study
  Country: KR (occurrence: KR)
  Receive Date: 20161210
  Receipt Date: 20170529
  Transmission Date: 20170830
  Serious: Yes (Hospitalization)
  Sender: FDA-Public Use
  Company Number: KR-AMGEN-KORCT2016174894

PATIENT
  Age: 19 Year
  Sex: Female
  Weight: 40.5 kg

DRUGS (14)
  1. PEGFILGRASTIM [Suspect]
     Active Substance: PEGFILGRASTIM
     Indication: DIFFUSE LARGE B-CELL LYMPHOMA
     Dosage: 6 MG, CYCLE 4 DAY 3
     Route: 058
     Dates: start: 20161016
  2. BENDAMUSTINE [Suspect]
     Active Substance: BENDAMUSTINE
     Dosage: 120 MG/M2,CYCLE 2 DAY L AND 2
     Route: 042
     Dates: start: 20160725, end: 20160726
  3. RITUXIMAB [Suspect]
     Active Substance: RITUXIMAB
     Dosage: 1400 MG, SINGLE DOSE,CYCLE 3 DAY 1
     Route: 058
     Dates: start: 20160901, end: 20160901
  4. RAPAMUNE [Concomitant]
     Active Substance: SIROLIMUS
     Dosage: 2TAB, QD
     Route: 048
     Dates: start: 20161119, end: 20161130
  5. AVELOX [Concomitant]
     Active Substance: MOXIFLOXACIN HYDROCHLORIDE
     Dosage: 1 TAB, QD
     Route: 048
     Dates: start: 20161125, end: 20161125
  6. NEUTROGIN [Concomitant]
     Active Substance: LENOGRASTIM
     Dosage: 1AMP QD
     Route: 058
     Dates: start: 20161128
  7. BENDAMUSTINE [Suspect]
     Active Substance: BENDAMUSTINE
     Dosage: 120 MG/M2,CYCLE 3 DAY L AND 2
     Route: 042
     Dates: start: 20160901, end: 20160901
  8. CALCORT [Concomitant]
     Active Substance: DEFLAZACORT
     Dosage: 1 TAB, QD
     Route: 048
     Dates: start: 20161119, end: 20161130
  9. RITUXIMAB [Suspect]
     Active Substance: RITUXIMAB
     Indication: DIFFUSE LARGE B-CELL LYMPHOMA
     Dosage: 1400 MG, SINGLE DOSE,
     Route: 058
     Dates: start: 20160725, end: 20160725
  10. BENDAMUSTINE [Suspect]
     Active Substance: BENDAMUSTINE
     Dosage: 83 MG, CYCLE 4 DAY 1 AND 2
     Route: 042
     Dates: start: 20161013, end: 20161014
  11. RITUXIMAB [Suspect]
     Active Substance: RITUXIMAB
     Dosage: 1400 MG, SINGLE DOSE,CYCLE 3 DAY 1
     Route: 058
     Dates: start: 20161013, end: 20161013
  12. RITUXIMAB [Suspect]
     Active Substance: RITUXIMAB
     Dosage: 375 MG/M2, SINGLE DOSE,CYCLE FIRST DAY 1
     Route: 058
     Dates: start: 20160704, end: 20160704
  13. NORMAL SALINE [Concomitant]
     Active Substance: SODIUM CHLORIDE
     Dosage: UNK
     Route: 042
     Dates: start: 20161119, end: 20161130
  14. BENDAMUSTINE [Suspect]
     Active Substance: BENDAMUSTINE
     Indication: DIFFUSE LARGE B-CELL LYMPHOMA
     Dosage: 120 MG/M2,CYCLE L DAY 2 AND 3
     Route: 042
     Dates: start: 20160705, end: 20160706

REACTIONS (1)
  - Cytomegalovirus infection [Recovering/Resolving]

NARRATIVE: CASE EVENT DATE: 20161126
